FAERS Safety Report 5044975-9 (Version None)
Quarter: 2006Q3

REPORT INFORMATION
  Report Type: 
  Country: None (occurrence: None)
  Receive Date: 20060707
  Receipt Date: 20060404
  Transmission Date: 20061208
  Serious: Yes (Other)
  Sender: FDA-Public Use
  Company Number: PHEH2006US04452

PATIENT
  Age: 78 Year
  Sex: Male

DRUGS (5)
  1. MIOCHOL-E [Suspect]
     Indication: CATARACT OPERATION
     Dosage: UNK, ONCE/SINGLE
     Route: 021
     Dates: start: 20060207, end: 20060207
  2. BSS PLUS [Concomitant]
     Indication: EYE IRRIGATION
     Route: 021
     Dates: start: 20060207, end: 20060207
  3. DUOVISC [Concomitant]
     Indication: EYE OPERATION
     Route: 021
     Dates: start: 20060207, end: 20060207
  4. DECADRON /NET/ [Concomitant]
     Indication: INFLAMMATION
     Route: 057
     Dates: start: 20060207, end: 20060207
  5. CEFAZOLIN [Concomitant]
     Indication: INFECTION
     Route: 057
     Dates: start: 20060207, end: 20060207

REACTIONS (2)
  - IRITIS [None]
  - MACULAR OEDEMA [None]
